FAERS Safety Report 5573116-4 (Version None)
Quarter: 2007Q4

REPORT INFORMATION
  Report Type: 
  Country: None (occurrence: None)
  Receive Date: 20071224
  Receipt Date: 20071214
  Transmission Date: 20080405
  Serious: Yes (Hospitalization)
  Sender: FDA-Public Use
  Company Number: GB-ROCHE-537399

PATIENT
  Age: 63 Year
  Sex: Female
  Weight: 88.9 kg

DRUGS (7)
  1. ORLISTAT [Suspect]
     Indication: OBESITY
     Route: 048
     Dates: start: 20071116
  2. FOLIC ACID [Concomitant]
     Dosage: INDICATION: REPLACING CELLS
     Route: 048
  3. AMILORIDE/FRUSEMIDE [Concomitant]
     Dosage: DRUG NAME: AMILOFRUSE
     Route: 048
  4. METHOTREXATE [Concomitant]
     Indication: ARTHRITIS
     Dosage: DRUG NAME: METHOTREXIT
     Route: 048
  5. LEVOTHYROXINE SODIUM [Concomitant]
     Dosage: DRUG NAME: THYROXIN
     Route: 048
  6. LIPITOR [Concomitant]
     Route: 048
  7. CETIRIZINE HCL [Concomitant]
     Route: 048

REACTIONS (4)
  - BLOOD PRESSURE DECREASED [None]
  - BODY TEMPERATURE DECREASED [None]
  - CHEST PAIN [None]
  - HEART RATE DECREASED [None]
